FAERS Safety Report 9351035 (Version 1)
Quarter: 2013Q2

REPORT INFORMATION
  Report Type: Spontaneous
  Country: BR (occurrence: BR)
  Receive Date: 20130617
  Receipt Date: 20130617
  Transmission Date: 20140414
  Serious: Yes (Other)
  Sender: FDA-Public Use
  Company Number: BR-BRISTOL-MYERS SQUIBB COMPANY-19002203

PATIENT
  Age: 36 Year
  Sex: Male
  Weight: 80 kg

DRUGS (2)
  1. ABILIFY TABS 10 MG [Suspect]
     Indication: OBSESSIVE-COMPULSIVE DISORDER
     Dosage: SUSPENDED FOR 20 DAYS IN MAY2013.
     Route: 048
     Dates: start: 201304
  2. LEXOTAN [Concomitant]

REACTIONS (4)
  - Mania [Unknown]
  - Irritability [Unknown]
  - Nervousness [Unknown]
  - Aggression [Unknown]
